FAERS Safety Report 4339683-3 (Version None)
Quarter: 2004Q1

REPORT INFORMATION
  Report Type: 
  Country: None (occurrence: None)
  Receive Date: 20040329
  Receipt Date: 20031229
  Transmission Date: 20041129
  Serious: No
  Sender: FDA-Public Use
  Company Number: 03P-163-0245808-00

PATIENT
  Age: 62 Year
  Sex: Female
  Weight: 63.5036 kg

DRUGS (6)
  1. HUMIRA [Suspect]
     Indication: RHEUMATOID ARTHRITIS
     Dosage: 40 MG, 1 IN 2 WK, SUBCUTANEOUS
     Route: 058
     Dates: start: 20030801
  2. AMOXICILLIN [Concomitant]
  3. CLARITHROMYCIN [Concomitant]
  4. CELECOXIB [Concomitant]
  5. PREDNISONE [Concomitant]
  6. ESOMEPRAZOLE [Concomitant]

REACTIONS (2)
  - ORAL DISCOMFORT [None]
  - RASH [None]
